FAERS Safety Report 4616753-3 (Version None)
Quarter: 2005Q2

REPORT INFORMATION
  Report Type: 
  Country: None (occurrence: None)
  Receive Date: 20050311
  Receipt Date: 20041217
  Transmission Date: 20051028
  Serious: Yes (Hospitalization)
  Sender: FDA-Public Use
  Company Number: 2004-00919

PATIENT
  Age: 83 Year
  Sex: Male
  Weight: 74.4 kg

DRUGS (2)
  1. VELCADE [Suspect]
     Indication: MULTIPLE MYELOMA
     Dosage: 1.30 MG/M2, INTRAVENOUS
     Route: 042
     Dates: start: 20041109, end: 20041119
  2. ONDANSETRON HCL [Concomitant]

REACTIONS (11)
  - ABDOMINAL DISTENSION [None]
  - ABDOMINAL PAIN [None]
  - BLOOD AMYLASE INCREASED [None]
  - FLUID RETENTION [None]
  - HYPERTENSION [None]
  - LIPASE INCREASED [None]
  - PANCREATITIS ACUTE [None]
  - PITTING OEDEMA [None]
  - PROSTATITIS [None]
  - URINARY RETENTION [None]
  - WEIGHT INCREASED [None]
